FAERS Safety Report 7484407-4 (Version None)
Quarter: 2011Q2

REPORT INFORMATION
  Report Type: 
  Country: None (occurrence: None)
  Receive Date: 20110513
  Receipt Date: 20110513
  Transmission Date: 20111010
  Serious: Yes (Hospitalization)
  Sender: FDA-Public Use
  Company Number: None

PATIENT
  Sex: Female
  Weight: 80.2867 kg

DRUGS (18)
  1. ASPIRIN [Concomitant]
  2. CARVEDILOL [Concomitant]
  3. HIZENTRA [Suspect]
     Indication: SELECTIVE IGG SUBCLASS DEFICIENCY
     Dates: start: 20101006, end: 20110504
  4. TUSSIONEX [Concomitant]
  5. ALBUTEROL [Concomitant]
  6. LIPITOR [Concomitant]
  7. ISOSORBIDE DINITRATE [Concomitant]
  8. TUSSIONEX [Concomitant]
  9. REGLAN [Concomitant]
  10. CLARITIN [Concomitant]
  11. NEXIUM [Concomitant]
  12. PLAVIX [Concomitant]
  13. SINGULAIR [Concomitant]
  14. SPIRIVA [Concomitant]
  15. ALPRAZOLAM [Concomitant]
  16. PULMICORT NEB [Concomitant]
  17. FORADIL [Concomitant]
  18. ACTONEL [Concomitant]

REACTIONS (2)
  - CHEST PAIN [None]
  - CARDIAC ENZYMES INCREASED [None]
